FAERS Safety Report 9949333 (Version 2)
Quarter: 2014Q2

REPORT INFORMATION
  Report Type: Spontaneous
  Country: US (occurrence: None)
  Receive Date: 20140122
  Receipt Date: 20140421
  Transmission Date: 20141212
  Serious: No
  Sender: FDA-Public Use
  Company Number: AEGR000239

PATIENT
  Age: 57 Year
  Sex: Female
  Weight: 58.5 kg

DRUGS (8)
  1. JUXTAPID (LOMITAPIDE) CAPSULE, 5MG [Suspect]
     Indication: TYPE IIA HYPERLIPIDAEMIA
     Route: 048
     Dates: start: 20131201
  2. PROAIR HFA (SALBUTAMOL SULFATE) [Concomitant]
  3. ADVAIR (FLUTICASONE PROPIONATE, SALMETEROL XINAFOATE) [Concomitant]
  4. ZOFRAN (ONDANSETRON HYDROCHLORIDE) [Concomitant]
  5. ZETIA (EZETIMIBE) [Concomitant]
  6. ALTACE (RAMIPRIL) [Concomitant]
  7. CRESTOR (ROSUVASTATIN CALCIUM) [Concomitant]
  8. CARVEDILOL (CARVEDILOL) [Concomitant]

REACTIONS (1)
  - Myalgia [None]
